FAERS Safety Report 18422221 (Version 2)
Quarter: 2020Q4

REPORT INFORMATION
  Report Type: Spontaneous
  Country: US (occurrence: US)
  Receive Date: 20201023
  Receipt Date: 20201028
  Transmission Date: 20210114
  Serious: Yes (Other)
  Sender: FDA-Public Use
  Company Number: NVSC2020US279837

PATIENT
  Sex: Female

DRUGS (1)
  1. TRIESENCE [Suspect]
     Active Substance: TRIAMCINOLONE ACETONIDE
     Indication: PRODUCT USED FOR UNKNOWN INDICATION
     Dosage: 4 MG
     Route: 065

REACTIONS (12)
  - Mood altered [Unknown]
  - Hunger [Unknown]
  - Skin atrophy [Unknown]
  - Scratch [Unknown]
  - Blood pressure increased [Unknown]
  - Weight increased [Unknown]
  - Dizziness [Unknown]
  - Headache [Unknown]
  - Contusion [Unknown]
  - Menopausal symptoms [Unknown]
  - Fluid retention [Unknown]
  - Depression [Unknown]
